FAERS Safety Report 13930161 (Version 4)
Quarter: 2019Q1

REPORT INFORMATION
  Report Type: Spontaneous
  Country: US (occurrence: US)
  Receive Date: 20170901
  Receipt Date: 20190225
  Transmission Date: 20190417
  Serious: Yes (Hospitalization)
  Sender: FDA-Public Use
  Company Number: US-VIFOR (INTERNATIONAL) INC.-VIT-2017-08871

PATIENT
  Age: 71 Year
  Sex: Female
  Weight: 86.26 kg

DRUGS (16)
  1. TURMERIC [Concomitant]
     Active Substance: HERBALS\TURMERIC
  2. SULFAMETHOXAZOLE-TRIMETHOPRIM [Concomitant]
     Active Substance: SULFAMETHOXAZOLE\TRIMETHOPRIM
  3. IRON [Concomitant]
     Active Substance: IRON
  4. LIPITOR [Concomitant]
     Active Substance: ATORVASTATIN CALCIUM
  5. VYTORIN [Concomitant]
     Active Substance: EZETIMIBE\SIMVASTATIN
  6. VELTASSA [Suspect]
     Active Substance: PATIROMER
     Indication: HYPERKALAEMIA
     Route: 048
     Dates: start: 20160406, end: 2019
  7. MOD [Concomitant]
  8. FLAXSEED [Concomitant]
     Active Substance: FLAX SEED
  9. OMEPRAZOLE. [Concomitant]
     Active Substance: OMEPRAZOLE
  10. ACTOS [Concomitant]
     Active Substance: PIOGLITAZONE HYDROCHLORIDE
  11. VITAMIN D3 [Concomitant]
     Active Substance: CHOLECALCIFEROL
  12. METFORMIN HYDROCHLORIDE. [Concomitant]
     Active Substance: METFORMIN HYDROCHLORIDE
  13. GABAPENTIN. [Concomitant]
     Active Substance: GABAPENTIN
  14. CLARINEX [Concomitant]
     Active Substance: DESLORATADINE
  15. CITALOPRAM HYDROBROMIDE. [Concomitant]
     Active Substance: CITALOPRAM HYDROBROMIDE
  16. BYDUREON [Concomitant]
     Active Substance: EXENATIDE

REACTIONS (6)
  - Head injury [Recovered/Resolved]
  - Blood potassium decreased [Unknown]
  - Ear injury [Recovered/Resolved]
  - Arthropathy [Recovered/Resolved]
  - Fall [Unknown]
  - Hospitalisation [Unknown]

NARRATIVE: CASE EVENT DATE: 20170818
